FAERS Safety Report 7750060-5 (Version None)
Quarter: 2011Q3

REPORT INFORMATION
  Report Type: 
  Country: None (occurrence: None)
  Receive Date: 20110825
  Receipt Date: 20110526
  Transmission Date: 20111222
  Serious: No
  Sender: FDA-Public Use
  Company Number: 329706

PATIENT
  Sex: Female

DRUGS (1)
  1. VICTOZA [Suspect]
     Indication: PRODUCT USED FOR UNKNOWN INDICATION
     Dosage: SUBCUTANEOUS
     Route: 058

REACTIONS (2)
  - INJECTION SITE PAIN [None]
  - VOMITING [None]
